FAERS Safety Report 25503254 (Version 3)
Quarter: 2025Q3

REPORT INFORMATION
  Report Type: Spontaneous
  Country: JP (occurrence: JP)
  Receive Date: 20250702
  Receipt Date: 20250819
  Transmission Date: 20251021
  Serious: Yes (Hospitalization)
  Sender: SUNOVION
  Company Number: JP-SMPA-2025SPA007692

PATIENT
  Age: 49 Year
  Sex: Female

DRUGS (5)
  1. RELUGOLIX [Suspect]
     Active Substance: RELUGOLIX
     Indication: Uterine leiomyoma
     Dosage: 40 MG, QD
     Route: 048
     Dates: start: 202502, end: 20250513
  2. RELUGOLIX [Suspect]
     Active Substance: RELUGOLIX
     Indication: Heavy menstrual bleeding
  3. AZELNIDIPINE [Concomitant]
     Active Substance: AZELNIDIPINE
  4. ENTRESTO [Concomitant]
     Active Substance: SACUBITRIL\VALSARTAN
  5. MAGNESIUM OXIDE [Concomitant]
     Active Substance: MAGNESIUM OXIDE

REACTIONS (2)
  - Acute myocardial infarction [Recovering/Resolving]
  - Coronary artery dissection [Recovering/Resolving]

NARRATIVE: CASE EVENT DATE: 20250513
